FAERS Safety Report 9975229 (Version 1)
Quarter: 2014Q1

REPORT INFORMATION
  Report Type: Report from Study
  Country: US (occurrence: US)
  Receive Date: 20140306
  Receipt Date: 20140306
  Transmission Date: 20141002
  Serious: No
  Sender: FDA-Public Use
  Company Number: US-ABBVIE-13P-163-1161681-00

PATIENT
  Age: 74 Year
  Sex: Female
  Weight: 77.18 kg

DRUGS (14)
  1. HUMIRA [Suspect]
     Indication: RHEUMATOID ARTHRITIS
     Dates: start: 20130131
  2. METHOTREXATE [Concomitant]
     Indication: RHEUMATOID ARTHRITIS
     Dosage: UNKNOWN
  3. FOLIC ACID [Concomitant]
     Indication: PRODUCT USED FOR UNKNOWN INDICATION
     Dosage: UNKNOWN
  4. PROPANOLOL [Concomitant]
     Indication: HYPERTENSION
     Dosage: UNKNOWN
  5. PROPANOLOL [Concomitant]
     Indication: TREMOR
  6. MELOXICAM [Concomitant]
     Indication: PAIN
  7. WELLBUTRIN [Concomitant]
     Indication: DEPRESSION
     Dosage: UNKNOWN
  8. CITALOPRAM [Concomitant]
     Indication: DEPRESSION
  9. LOSARTAN [Concomitant]
     Indication: HYPERTENSION
  10. PRAVASTATIN [Concomitant]
     Indication: BLOOD CHOLESTEROL INCREASED
     Dosage: UNKNOWN
  11. MOBIC [Concomitant]
     Indication: PRODUCT USED FOR UNKNOWN INDICATION
  12. BENCAR [Concomitant]
     Dosage: UNKNOWN
  13. CELEXA [Concomitant]
     Indication: PRODUCT USED FOR UNKNOWN INDICATION
     Dosage: UNKNOWN
  14. PROVOCAL [Concomitant]
     Indication: PRODUCT USED FOR UNKNOWN INDICATION

REACTIONS (6)
  - Device malfunction [Unknown]
  - Incorrect dose administered [Unknown]
  - Drug dose omission [Unknown]
  - Rheumatoid arthritis [Recovering/Resolving]
  - Arthralgia [Recovering/Resolving]
  - Drug ineffective [Unknown]
